FAERS Safety Report 7354036-1 (Version None)
Quarter: 2011Q1

REPORT INFORMATION
  Report Type: 
  Country: None (occurrence: None)
  Receive Date: 20110315
  Receipt Date: 20110310
  Transmission Date: 20110831
  Serious: Yes (Death)
  Sender: FDA-Public Use
  Company Number: PHHY2010BR55074

PATIENT
  Sex: Female

DRUGS (4)
  1. HIDANTAL [Concomitant]
     Indication: ISCHAEMIA
     Dosage: 100MG, 2 TABLETS DAILY
     Route: 048
     Dates: start: 20050101
  2. DIOVAN [Suspect]
     Indication: HYPERTENSION
     Dosage: 2 DF, QD
     Route: 048
     Dates: start: 20070101
  3. ENABLEX [Concomitant]
     Indication: RENAL FAILURE
     Dosage: 7.5 MG
  4. SOMALGIN [Concomitant]
     Dosage: 100MG: 1 TABLET DAILY
     Route: 048

REACTIONS (6)
  - RECTAL PROLAPSE [None]
  - CONDITION AGGRAVATED [None]
  - RESPIRATORY FAILURE [None]
  - ASPIRATION BRONCHIAL [None]
  - VOMITING [None]
  - SEPSIS [None]
